FAERS Safety Report 22153269 (Version 2)
Quarter: 2023Q2

REPORT INFORMATION
  Report Type: Spontaneous
  Country: BR (occurrence: BR)
  Receive Date: 20230329
  Receipt Date: 20230410
  Transmission Date: 20230721
  Serious: Yes (Other)
  Sender: FDA-Public Use
  Company Number: BR-009507513-2303BRA009389

PATIENT
  Age: 32 Year
  Sex: Female

DRUGS (6)
  1. KEYTRUDA [Suspect]
     Active Substance: PEMBROLIZUMAB
     Indication: Triple negative breast cancer
     Dosage: ADJUVANT THERAPY
     Dates: start: 202112, end: 202206
  2. KEYTRUDA [Suspect]
     Active Substance: PEMBROLIZUMAB
     Dosage: NEOADJUVANT THERAPY
     Dates: start: 202109, end: 202301
  3. CARBOPLATIN [Suspect]
     Active Substance: CARBOPLATIN
     Indication: Triple negative breast cancer
     Dosage: AUC 1,5 (ADJUVANT THERAPY) EVERY WEEK
     Dates: start: 202112
  4. TAXOL [Suspect]
     Active Substance: PACLITAXEL
     Indication: Triple negative breast cancer
     Dosage: AUC 1,5 (ADJUVANT THERAPY)
     Dates: start: 202112
  5. DOXORUBICIN [Suspect]
     Active Substance: DOXORUBICIN
     Indication: Triple negative breast cancer
     Dosage: UNK, Q3W
     Dates: end: 202206
  6. CYCLOPHOSPHAMIDE [Suspect]
     Active Substance: CYCLOPHOSPHAMIDE
     Indication: Triple negative breast cancer
     Dosage: ADJUVANT THERAPY
     Dates: end: 202206

REACTIONS (10)
  - Tumour necrosis [Unknown]
  - Mastectomy [Unknown]
  - Radiotherapy [Unknown]
  - Neutropenia [Unknown]
  - Breast calcifications [Unknown]
  - Lymphadenopathy [Unknown]
  - Therapy partial responder [Recovered/Resolved]
  - Hand-foot-and-mouth disease [Unknown]
  - Breast fibrosis [Unknown]
  - Haematotoxicity [Unknown]

NARRATIVE: CASE EVENT DATE: 20210323
